FAERS Safety Report 9968105 (Version 1)
Quarter: 2014Q1

REPORT INFORMATION
  Report Type: Report from Study
  Country: US (occurrence: US)
  Receive Date: 20140306
  Receipt Date: 20140306
  Transmission Date: 20141002
  Serious: No
  Sender: FDA-Public Use
  Company Number: US-ABBVIE-13P-163-1142343-00

PATIENT
  Age: 26 Year
  Sex: Female

DRUGS (4)
  1. HUMIRA [Suspect]
     Indication: CROHN^S DISEASE
     Dates: start: 20130612
  2. OMEPRAZOLE [Concomitant]
     Indication: DYSPEPSIA
     Dosage: 40 MG DAILY
  3. VITAMINS [Concomitant]
     Indication: MINERAL SUPPLEMENTATION
  4. GARLIC [Concomitant]
     Indication: PRODUCT USED FOR UNKNOWN INDICATION

REACTIONS (3)
  - Dysuria [Not Recovered/Not Resolved]
  - Pollakiuria [Not Recovered/Not Resolved]
  - Cystitis [Not Recovered/Not Resolved]
